FAERS Safety Report 7511587-4 (Version None)
Quarter: 2011Q2

REPORT INFORMATION
  Report Type: 
  Country: None (occurrence: None)
  Receive Date: 20110531
  Receipt Date: 20110525
  Transmission Date: 20111010
  Serious: Yes (Other)
  Sender: FDA-Public Use
  Company Number: JP-PFIZER INC-2011084882

PATIENT
  Age: 49 Year
  Sex: Female

DRUGS (5)
  1. SEROQUEL [Concomitant]
     Dosage: 25 MG, 1X/DAY
     Dates: end: 20101207
  2. LANSOPRAZOLE [Concomitant]
     Dosage: 15 MG, 1X/DAY
     Route: 048
  3. FUROSEMIDE [Concomitant]
     Dosage: 20 MG, 1X/DAY
  4. ALEVIATIN [Concomitant]
     Dosage: UNK
     Dates: end: 20101208
  5. ALDACTONE [Suspect]
     Dosage: UNK
     Route: 048
     Dates: start: 20101203

REACTIONS (1)
  - TOXIC SKIN ERUPTION [None]
